FAERS Safety Report 13695754 (Version 1)
Quarter: 2017Q2

REPORT INFORMATION
  Report Type: Spontaneous
  Country: IT (occurrence: IT)
  Receive Date: 20170627
  Receipt Date: 20170627
  Transmission Date: 20170830
  Serious: Yes (Hospitalization)
  Sender: FDA-Public Use
  Company Number: PHHY2017IT091435

PATIENT
  Age: 79 Year
  Sex: Female

DRUGS (2)
  1. IBUPROFEN. [Suspect]
     Active Substance: IBUPROFEN
     Indication: THROAT IRRITATION
     Dosage: 200 MG, UNK
     Route: 048
  2. ACETYLSALICYLIC ACID [Suspect]
     Active Substance: ASPIRIN
     Indication: THROAT IRRITATION
     Dosage: 100 MG, UNK
     Route: 065

REACTIONS (3)
  - Gastritis erosive [Recovering/Resolving]
  - Haematemesis [Recovering/Resolving]
  - Drug prescribing error [Unknown]
